FAERS Safety Report 8157796-5 (Version None)
Quarter: 2012Q1

REPORT INFORMATION
  Report Type: 
  Country: None (occurrence: None)
  Receive Date: 20120222
  Receipt Date: 20120206
  Transmission Date: 20120608
  Serious: No
  Sender: FDA-Public Use
  Company Number: US-ASTRAZENECA-2012SE08352

PATIENT
  Age: 50 Year
  Sex: Male

DRUGS (5)
  1. VIAGRA [Concomitant]
  2. SEROQUEL XR [Suspect]
     Route: 048
  3. LISINOPRIL AND HYDROCHLOROTHIAZIDE [Suspect]
     Route: 048
  4. NEURONTIN [Concomitant]
  5. VICODIN [Concomitant]

REACTIONS (4)
  - DISABILITY [None]
  - PAIN [None]
  - INTERVERTEBRAL DISC PROTRUSION [None]
  - MUSCULAR WEAKNESS [None]
